FAERS Safety Report 17816102 (Version 1)
Quarter: 2020Q2

REPORT INFORMATION
  Report Type: Spontaneous
  Country: US (occurrence: US)
  Receive Date: 20200522
  Receipt Date: 20200522
  Transmission Date: 20200714
  Serious: No
  Sender: FDA-Public Use
  Company Number: US-BAYER-2020-074908

PATIENT
  Age: 71 Year
  Sex: Female
  Weight: 51 kg

DRUGS (4)
  1. STATINOR [ATORVASTATIN CALCIUM] [Concomitant]
  2. ALEVE [Suspect]
     Active Substance: NAPROXEN SODIUM
     Indication: INFLAMMATION
     Dosage: 2 DF
     Route: 048
     Dates: start: 20200427, end: 20200427
  3. ATENOLOL. [Concomitant]
     Active Substance: ATENOLOL
  4. TYLENOL [Suspect]
     Active Substance: ACETAMINOPHEN
     Dosage: 500 MG

REACTIONS (6)
  - Vision blurred [Recovered/Resolved]
  - Product use in unapproved indication [Unknown]
  - Paraesthesia [Recovered/Resolved]
  - Chest pain [Recovered/Resolved]
  - Gait disturbance [Recovered/Resolved]
  - Off label use [Unknown]

NARRATIVE: CASE EVENT DATE: 20200428
